FAERS Safety Report 17050691 (Version 2)
Quarter: 2019Q4

REPORT INFORMATION
  Report Type: Report from Study
  Country: None (occurrence: US)
  Receive Date: 20191119
  Receipt Date: 20191204
  Transmission Date: 20200122
  Serious: Yes (Hospitalization)
  Sender: FDA-Public Use
  Company Number: US-ABBVIE-19K-163-2972294-00

PATIENT
  Age: 66 Year
  Sex: Female

DRUGS (3)
  1. HUMIRA [Suspect]
     Active Substance: ADALIMUMAB
     Indication: COLITIS ULCERATIVE
     Dosage: DAY 1
     Route: 058
     Dates: start: 20190930, end: 20190930
  2. HUMIRA [Suspect]
     Active Substance: ADALIMUMAB
     Route: 058
     Dates: start: 20191027, end: 20191027
  3. HUMIRA [Suspect]
     Active Substance: ADALIMUMAB
     Dosage: DAY 15
     Route: 058
     Dates: start: 20191014, end: 20191014

REACTIONS (18)
  - Decreased appetite [Not Recovered/Not Resolved]
  - Gallbladder disorder [Unknown]
  - Nausea [Unknown]
  - Lung disorder [Unknown]
  - Blood pressure inadequately controlled [Unknown]
  - Rectal haemorrhage [Not Recovered/Not Resolved]
  - Fatigue [Unknown]
  - Pleural effusion [Unknown]
  - Gastrointestinal infection [Recovering/Resolving]
  - Diarrhoea [Unknown]
  - Dyspnoea [Recovering/Resolving]
  - Oral infection [Unknown]
  - Pneumonia [Recovering/Resolving]
  - Asthenia [Unknown]
  - Tongue discolouration [Unknown]
  - Anal incontinence [Not Recovered/Not Resolved]
  - Weight decreased [Not Recovered/Not Resolved]
  - Diarrhoea haemorrhagic [Not Recovered/Not Resolved]

NARRATIVE: CASE EVENT DATE: 2019
